FAERS Safety Report 8169809-5 (Version None)
Quarter: 2012Q1

REPORT INFORMATION
  Report Type: 
  Country: None (occurrence: None)
  Receive Date: 20120228
  Receipt Date: 20120221
  Transmission Date: 20120608
  Serious: Yes (Other)
  Sender: FDA-Public Use
  Company Number: US-JNJFOC-20120210639

PATIENT
  Sex: Male

DRUGS (6)
  1. HYDROCHLOROTHIAZIDE [Concomitant]
  2. LOVASTATIN [Concomitant]
  3. STELARA [Suspect]
     Indication: PSORIASIS
     Route: 058
     Dates: start: 20111118
  4. STELARA [Suspect]
     Route: 058
     Dates: start: 20100101
  5. ALLOPURINOL [Concomitant]
  6. METFORMIN HCL [Concomitant]

REACTIONS (2)
  - PLATELET COUNT DECREASED [None]
  - INCORRECT DRUG ADMINISTRATION DURATION [None]
